FAERS Safety Report 5229292-6 (Version None)
Quarter: 2007Q1

REPORT INFORMATION
  Report Type: 
  Country: None (occurrence: None)
  Receive Date: 20061201
  Receipt Date: 20060907
  Transmission Date: 20070707
  Serious: No
  Sender: FDA-Public Use
  Company Number: US200609001880

PATIENT
  Sex: Male

DRUGS (6)
  1. CYMBALTA [Suspect]
     Dosage: 60 MG, DAILY (1/D)
     Dates: start: 20060701
  2. FLOMAX [Concomitant]
  3. PROVIGIL [Concomitant]
  4. KEPPRA /USA/ (LEVETIRACETAM) [Concomitant]
  5. CHLORTHALIDONE [Concomitant]
  6. PRILOSEC [Concomitant]

REACTIONS (1)
  - COELIAC DISEASE [None]
